FAERS Safety Report 8848156 (Version 3)
Quarter: 2012Q4

REPORT INFORMATION
  Report Type: 
  Country: US (occurrence: US)
  Receive Date: 20121018
  Receipt Date: 20121213
  Transmission Date: 20130627
  Serious: Yes (Hospitalization, Other)
  Sender: FDA-Public Use
  Company Number: US-PFIZER INC-2012256135

PATIENT
  Age: 63 Year
  Sex: Male
  Weight: 78 kg

DRUGS (3)
  1. XALKORI [Suspect]
     Indication: NON-SMALL CELL LUNG CANCER
     Dosage: 250 mg, 2x/day
     Route: 048
     Dates: start: 20120927
  2. ACETAMINOPHEN [Concomitant]
     Indication: HEADACHE
     Dosage: UNK
  3. ACETAMINOPHEN [Concomitant]
     Indication: FEVER

REACTIONS (2)
  - Thrombosis [Unknown]
  - Haemoglobin decreased [Recovering/Resolving]
